FAERS Safety Report 24831698 (Version 3)
Quarter: 2025Q1

REPORT INFORMATION
  Report Type: Spontaneous
  Country: JP (occurrence: JP)
  Receive Date: 20250110
  Receipt Date: 20250209
  Transmission Date: 20250408
  Serious: Yes (Other)
  Sender: REGENERON
  Company Number: JP-BAYER-2025A002653

PATIENT
  Age: 82 Year
  Sex: Male

DRUGS (5)
  1. EYLEA [Suspect]
     Active Substance: AFLIBERCEPT
     Indication: Neovascular age-related macular degeneration
     Dates: start: 20181008
  2. LUCENTIS [Concomitant]
     Active Substance: RANIBIZUMAB
     Indication: Age-related macular degeneration
     Dates: start: 20181008
  3. BEOVU [Concomitant]
     Active Substance: BROLUCIZUMAB-DBLL
     Indication: Age-related macular degeneration
     Dates: start: 20181008
  4. VABYSMO [Concomitant]
     Active Substance: FARICIMAB-SVOA
     Indication: Age-related macular degeneration
     Dates: start: 20181008
  5. FARICIMAB [Concomitant]
     Active Substance: FARICIMAB
     Indication: Neovascular age-related macular degeneration

REACTIONS (3)
  - Viral uveitis [Recovered/Resolved]
  - Epstein-Barr virus test positive [Unknown]
  - Visual acuity reduced [Unknown]

NARRATIVE: CASE EVENT DATE: 20230301
